FAERS Safety Report 18051544 (Version 2)
Quarter: 2020Q3

REPORT INFORMATION
  Report Type: Spontaneous
  Country: US (occurrence: US)
  Receive Date: 20200721
  Receipt Date: 20200730
  Transmission Date: 20201103
  Serious: Yes (Other)
  Sender: FDA-Public Use
  Company Number: US-BAUSCH-BL-2020-020165

PATIENT
  Sex: Male
  Weight: 95.34 kg

DRUGS (1)
  1. PRIMIDONE. [Suspect]
     Active Substance: PRIMIDONE
     Indication: PRODUCT USED FOR UNKNOWN INDICATION
     Dosage: STARTED EARLY 80S AND STOPPED IN 80S
     Route: 065

REACTIONS (2)
  - Seizure [Recovered/Resolved]
  - Myelodysplastic syndrome [Recovered/Resolved]
